FAERS Safety Report 5393809-1 (Version None)
Quarter: 2007Q3

REPORT INFORMATION
  Report Type: 
  Country: None (occurrence: None)
  Receive Date: 20070723
  Receipt Date: 20070711
  Transmission Date: 20080115
  Serious: Yes (Hospitalization)
  Sender: FDA-Public Use
  Company Number: AU-AVENTIS-200713290EU

PATIENT
  Age: 77 Year
  Sex: Male
  Weight: 104 kg

DRUGS (11)
  1. LASIX [Suspect]
     Indication: PLEURAL EFFUSION
  2. ALDACTONE [Suspect]
     Indication: PLEURAL EFFUSION
  3. LIPIDIL [Concomitant]
  4. WARFARIN SODIUM [Concomitant]
  5. GEMFIBROZIL [Concomitant]
  6. ATORVASTATIN CALCIUM [Concomitant]
  7. ALLOPURINOL [Concomitant]
  8. TELMISARTAN [Concomitant]
  9. TRANDOLAPRIL [Concomitant]
  10. VERAPAMIL [Concomitant]
  11. PRAZOSIN HCL [Concomitant]

REACTIONS (1)
  - RENAL FAILURE ACUTE [None]
